FAERS Safety Report 7189882-0 (Version None)
Quarter: 2010Q4

REPORT INFORMATION
  Report Type: 
  Country: None (occurrence: None)
  Receive Date: 20101223
  Receipt Date: 20101213
  Transmission Date: 20110411
  Serious: Yes (Other)
  Sender: FDA-Public Use
  Company Number: US-ELI_LILLY_AND_COMPANY-US201010001133

PATIENT
  Sex: Female

DRUGS (15)
  1. FORTEO [Suspect]
     Indication: OSTEOPOROSIS
     Dosage: 20 UG, DAILY (1/D)
     Dates: start: 20100922
  2. ASPIRIN [Concomitant]
     Dosage: 0.81 D/F, DAILY (1/D)
  3. VITAMIN B COMPLEX CAP [Concomitant]
     Dosage: UNK, DAILY (1/D)
  4. TRIAMTERENE AND HYDROCHLOROTHIAZID [Concomitant]
     Dosage: 37.5 D/F, DAILY HALF A PILL
  5. D3-VICOTRAT [Concomitant]
     Dosage: 400 IU, DAILY (1/D)
  6. D3-VICOTRAT [Concomitant]
     Dosage: 2000 IU, DAILY (1/D)
  7. KLOR-CON [Concomitant]
     Dosage: 8 MEQ, DAILY
  8. NIACIN [Concomitant]
     Dosage: 2 TABLETS 50 MG, DAILY
  9. PRESERVISION LUTEIN EYE VITA.+MIN.SUP.SOFTG. [Concomitant]
     Dosage: UNK, 2/D
  10. MULTI-VITAMIN [Concomitant]
     Dosage: UNK, DAILY (1/D)
  11. CALCIUM CITRATE W/VITAMIN D NOS [Concomitant]
  12. OMEPRAZOLE [Concomitant]
     Dosage: 20 MG, AS NEEDED
  13. METHOCARBAMOL [Concomitant]
     Dosage: 500 MG, AS NEEDED
  14. MELOXICAM [Concomitant]
     Dosage: 7.5, AS NEEDED
  15. RESTASIS [Concomitant]
     Dosage: UNK, 2/D

REACTIONS (6)
  - ARTHRALGIA [None]
  - BASAL CELL CARCINOMA [None]
  - HEADACHE [None]
  - INJECTION SITE HAEMATOMA [None]
  - INJECTION SITE REACTION [None]
  - WRONG TECHNIQUE IN DRUG USAGE PROCESS [None]
